FAERS Safety Report 9503908 (Version 1)
Quarter: 2013Q3

REPORT INFORMATION
  Report Type: Spontaneous
  Country: US (occurrence: None)
  Receive Date: 20130905
  Receipt Date: 20130905
  Transmission Date: 20140515
  Serious: Yes (Other)
  Sender: FDA-Public Use
  Company Number: None

PATIENT
  Age: 8 Year
  Sex: Female
  Weight: 25.4 kg

DRUGS (2)
  1. MIRALAX [Suspect]
     Indication: ABDOMINAL PAIN UPPER
     Dates: start: 20130418, end: 20130824
  2. MIRALAX [Suspect]
     Indication: CONSTIPATION
     Dates: start: 20130418, end: 20130824

REACTIONS (9)
  - Anger [None]
  - Suicidal ideation [None]
  - Social avoidant behaviour [None]
  - Eye disorder [None]
  - Screaming [None]
  - Intentional self-injury [None]
  - Abnormal behaviour [None]
  - Precocious puberty [None]
  - Incorrect dose administered [None]
